FAERS Safety Report 19783837 (Version 1)
Quarter: 2021Q3

REPORT INFORMATION
  Report Type: Spontaneous
  Country: US (occurrence: US)
  Receive Date: 20210902
  Receipt Date: 20210902
  Transmission Date: 20211014
  Serious: Yes (Other)
  Sender: FDA-Public Use
  Company Number: None

PATIENT
  Age: 71 Year
  Sex: Male
  Weight: 87.75 kg

DRUGS (7)
  1. ASPIRIN 325 MG [Concomitant]
     Active Substance: ASPIRIN
  2. LISTERINE TOTAL CARE [Suspect]
     Active Substance: SODIUM FLUORIDE
     Indication: DENTAL DISORDER PROPHYLAXIS
     Dosage: ?OTHER STRENGTH:NORMAL;?QUANTITY:1 OUNCE(S);?OTHER ROUTE:ORAL RINSE?
     Route: 048
     Dates: start: 20210815
  3. TRAZODONE HCI 150 MG [Concomitant]
     Active Substance: TRAZODONE HYDROCHLORIDE
  4. CITALOPRAM [Concomitant]
     Active Substance: CITALOPRAM HYDROBROMIDE
  5. STOOLSOFTENER [Concomitant]
  6. FISH OIL [Concomitant]
     Active Substance: FISH OIL
  7. SIMVASTATIN. [Concomitant]
     Active Substance: SIMVASTATIN

REACTIONS (1)
  - Chemical burn of oral cavity [None]

NARRATIVE: CASE EVENT DATE: 20210828
